FAERS Safety Report 10229561 (Version 1)
Quarter: 2014Q2

REPORT INFORMATION
  Report Type: Spontaneous
  Country: US (occurrence: None)
  Receive Date: 20140610
  Receipt Date: 20140610
  Transmission Date: 20141212
  Serious: Yes (Other)
  Sender: FDA-Public Use
  Company Number: None

PATIENT
  Age: 60 Year
  Sex: Female
  Weight: 47.63 kg

DRUGS (1)
  1. GAMUNEX-C 20 GM VIAL GRIFOLS [Suspect]
     Route: 042
     Dates: start: 20140521

REACTIONS (4)
  - Back pain [None]
  - Flushing [None]
  - Chest pain [None]
  - Infusion related reaction [None]
